FAERS Safety Report 16176130 (Version 1)
Quarter: 2019Q2

REPORT INFORMATION
  Report Type: Spontaneous
  Country: US (occurrence: US)
  Receive Date: 20190409
  Receipt Date: 20190409
  Transmission Date: 20190711
  Serious: Yes (Other)
  Sender: FDA-Public Use
  Company Number: US-SA-2019SA095617

PATIENT
  Age: 80 Year
  Sex: Female

DRUGS (5)
  1. LEVOTHYROXINE SODIUM. [Suspect]
     Active Substance: LEVOTHYROXINE SODIUM
     Dosage: UNK, UNK
  2. METOPROLOL SALT NOT SPECIFIED [Suspect]
     Active Substance: METOPROLOL
     Dosage: UNK, UNK
  3. PLAVIX [Suspect]
     Active Substance: CLOPIDOGREL BISULFATE
     Dosage: UNK, UNK
  4. ACETYLSALICYLIC ACID [Suspect]
     Active Substance: ASPIRIN
     Dosage: UNK, UNK
  5. ELIQUIS [Suspect]
     Active Substance: APIXABAN
     Indication: THROMBOSIS
     Dosage: 5 MG, BID
     Route: 048
     Dates: start: 2018

REACTIONS (1)
  - Thrombosis [Unknown]
